FAERS Safety Report 6823708-7 (Version None)
Quarter: 2010Q3

REPORT INFORMATION
  Report Type: 
  Country: None (occurrence: None)
  Receive Date: 20100708
  Receipt Date: 20060819
  Transmission Date: 20110219
  Serious: No
  Sender: FDA-Public Use
  Company Number: US-PFIZER INC-2006103690

PATIENT
  Sex: Male

DRUGS (4)
  1. CHANTIX [Suspect]
     Indication: SMOKING CESSATION THERAPY
     Route: 065
     Dates: start: 20060801
  2. LORAZEPAM [Concomitant]
     Route: 065
  3. DIAZEPAM [Concomitant]
     Route: 065
  4. ACYCLOVIR [Concomitant]
     Route: 065

REACTIONS (6)
  - ABDOMINAL DISTENSION [None]
  - DECREASED APPETITE [None]
  - GASTROINTESTINAL DISORDER [None]
  - MALAISE [None]
  - TOBACCO USER [None]
  - WEIGHT INCREASED [None]
